FAERS Safety Report 25416880 (Version 1)
Quarter: 2025Q2

REPORT INFORMATION
  Report Type: Report from Study
  Country: US (occurrence: US)
  Receive Date: 20250610
  Receipt Date: 20250610
  Transmission Date: 20250717
  Serious: Yes (Other)
  Sender: AUROBINDO
  Company Number: US-AUROBINDO-AUR-APL-2025-028582

PATIENT
  Age: 3 Year
  Sex: Female

DRUGS (4)
  1. BARICITINIB [Suspect]
     Active Substance: BARICITINIB
     Indication: Still^s disease
     Route: 065
  2. TOCILIZUMAB [Suspect]
     Active Substance: TOCILIZUMAB
     Indication: Still^s disease
     Route: 065
  3. SIROLIMUS [Suspect]
     Active Substance: SIROLIMUS
     Indication: Still^s disease
     Route: 065
  4. EMAPALUMAB [Suspect]
     Active Substance: EMAPALUMAB
     Indication: Haemophagocytic lymphohistiocytosis
     Route: 065

REACTIONS (1)
  - Drug ineffective [Unknown]
